FAERS Safety Report 5621046-1 (Version None)
Quarter: 2008Q1

REPORT INFORMATION
  Report Type: 
  Country: None (occurrence: None)
  Receive Date: 20080208
  Receipt Date: 20080131
  Transmission Date: 20080703
  Serious: Yes (Other)
  Sender: FDA-Public Use
  Company Number: US-PFIZER INC-2008010265

PATIENT

DRUGS (1)
  1. LYRICA [Suspect]
     Dosage: DAILY DOSE:600MG

REACTIONS (4)
  - BRAIN OEDEMA [None]
  - ENCEPHALOPATHY [None]
  - FALL [None]
  - LETHARGY [None]
